FAERS Safety Report 14353597 (Version 3)
Quarter: 2018Q1

REPORT INFORMATION
  Report Type: Report from Study
  Country: BR (occurrence: BR)
  Receive Date: 20180105
  Receipt Date: 20180221
  Transmission Date: 20180509
  Serious: Yes (Other)
  Sender: FDA-Public Use
  Company Number: BR-UCBSA-2017051835

PATIENT
  Age: 63 Year
  Sex: Female
  Weight: 37 kg

DRUGS (8)
  1. BENSERAZIDE HYDROCHLORIDE W/LEVODOPA [Concomitant]
     Indication: PARKINSON^S DISEASE
     Dosage: 125 MG, UNK
     Route: 048
  2. ROTIGOTINE [Suspect]
     Active Substance: ROTIGOTINE
     Indication: PARKINSON^S DISEASE
     Dosage: 2 MG, ONCE DAILY (QD)
     Route: 062
     Dates: start: 2016, end: 2017
  3. BENSERAZIDE HYDROCHLORIDE W/LEVODOPA [Concomitant]
     Indication: PARKINSON^S DISEASE
     Dosage: UNK, ONCE DAILY (QD)
     Route: 048
     Dates: start: 2016
  4. ROTIGOTINE [Suspect]
     Active Substance: ROTIGOTINE
     Dosage: 4 MG, ONCE DAILY (QD)
     Route: 062
     Dates: start: 2017, end: 2017
  5. OMEPRAZOL [Concomitant]
     Active Substance: OMEPRAZOLE
     Indication: PRODUCT USED FOR UNKNOWN INDICATION
     Dosage: UNK
  6. ROTIGOTINE [Suspect]
     Active Substance: ROTIGOTINE
     Dosage: 6 MG, ONCE DAILY (QD)
     Route: 062
     Dates: start: 2017, end: 201711
  7. ROTIGOTINE [Suspect]
     Active Substance: ROTIGOTINE
     Dosage: 8 MG, ONCE DAILY (QD)
     Route: 062
     Dates: start: 20171108
  8. AZUKON [Concomitant]
     Active Substance: GLICLAZIDE
     Indication: DIABETES MELLITUS
     Dosage: 30 MG, ONCE DAILY (QD)
     Route: 048
     Dates: start: 2013

REACTIONS (7)
  - Fall [Unknown]
  - Parkinsonism [Not Recovered/Not Resolved]
  - Snoring [Not Recovered/Not Resolved]
  - Erythema [Recovered/Resolved]
  - Choking [Not Recovered/Not Resolved]
  - Spinal column injury [Not Recovered/Not Resolved]
  - Drug ineffective [Unknown]

NARRATIVE: CASE EVENT DATE: 201703
